FAERS Safety Report 20151476 (Version 1)
Quarter: 2021Q4

REPORT INFORMATION
  Report Type: Spontaneous
  Country: US (occurrence: None)
  Receive Date: 20211203
  Receipt Date: 20211203
  Transmission Date: 20220304
  Serious: Yes (Death)
  Sender: FDA-Public Use
  Company Number: None

PATIENT
  Age: 50 Year
  Sex: Male

DRUGS (1)
  1. ZARXIO [Suspect]
     Active Substance: FILGRASTIM-SNDZ
     Indication: Neoplasm malignant
     Dosage: FREQUENCY : DAILY;?
     Route: 058
     Dates: start: 20210622, end: 20210901

REACTIONS (1)
  - Death [None]

NARRATIVE: CASE EVENT DATE: 20211202
